FAERS Safety Report 10365620 (Version 5)
Quarter: 2014Q4

REPORT INFORMATION
  Report Type: Spontaneous
  Country: US (occurrence: US)
  Receive Date: 20140806
  Receipt Date: 20141105
  Transmission Date: 20150528
  Serious: Yes (Hospitalization)
  Sender: FDA-Public Use
  Company Number: US-PFIZER INC-2014214692

PATIENT
  Age: 52 Year
  Sex: Male

DRUGS (1)
  1. XALKORI [Suspect]
     Active Substance: CRIZOTINIB
     Indication: LUNG NEOPLASM MALIGNANT
     Dosage: 250 MG, 2X/DAY
     Dates: start: 20140524

REACTIONS (9)
  - Nausea [Recovered/Resolved]
  - Vomiting [Recovered/Resolved]
  - Oesophageal infection [Unknown]
  - Lung neoplasm malignant [Unknown]
  - Fatigue [Unknown]
  - Disease progression [Unknown]
  - Lethargy [Unknown]
  - Pneumonia [Unknown]
  - Appendicitis [Unknown]

NARRATIVE: CASE EVENT DATE: 201407
